FAERS Safety Report 9681449 (Version 2)
Quarter: 2013Q4

REPORT INFORMATION
  Report Type: Spontaneous
  Country: BR (occurrence: BR)
  Receive Date: 20131111
  Receipt Date: 20131216
  Transmission Date: 20140711
  Serious: Yes (Other)
  Sender: FDA-Public Use
  Company Number: BR-AMGEN-BRASP2013078894

PATIENT
  Age: 50 Year
  Sex: Female
  Weight: 78 kg

DRUGS (3)
  1. ENBREL [Suspect]
     Indication: PSORIATIC ARTHROPATHY
     Dosage: 50 MG, ONCE WEEKLY
     Route: 065
     Dates: start: 201309
  2. GLIBENCIL [Concomitant]
     Dosage: 5 MG, 1 TABLET DAILY
     Dates: start: 2010
  3. ENALAMED [Concomitant]
     Dosage: 20 MG, 1 TABLET DAILY
     Dates: start: 2010

REACTIONS (12)
  - Nodule [Unknown]
  - Swelling [Unknown]
  - Hyperkeratosis [Unknown]
  - Skin induration [Unknown]
  - Pruritus [Unknown]
  - Skin erosion [Unknown]
  - Pyrexia [Unknown]
  - Erythema [Unknown]
  - Skin burning sensation [Unknown]
  - Pigmentation disorder [Unknown]
  - Lymphadenitis bacterial [Unknown]
  - Furuncle [Unknown]
